FAERS Safety Report 14955339 (Version 2)
Quarter: 2018Q2

REPORT INFORMATION
  Report Type: Report from Study
  Country: None (occurrence: CH)
  Receive Date: 20180531
  Receipt Date: 20180611
  Transmission Date: 20180711
  Serious: Yes (Hospitalization)
  Sender: FDA-Public Use
  Company Number: CH-ABBVIE-18K-151-2371846-00

PATIENT
  Sex: Male

DRUGS (3)
  1. DUODOPA [Suspect]
     Active Substance: CARBIDOPA\LEVODOPA
     Indication: PARKINSON^S DISEASE
     Route: 050
     Dates: start: 20140903, end: 20170607
  2. DUODOPA [Suspect]
     Active Substance: CARBIDOPA\LEVODOPA
     Dosage: MORNING DOSE 7ML?CONTINUOUS RATE 3ML/H?EXTRA DOSE 1.4ML?(16H THERAPY)
     Route: 050
     Dates: start: 20170607, end: 20180315
  3. DUODOPA [Suspect]
     Active Substance: CARBIDOPA\LEVODOPA
     Dosage: MORNING DOSE 8ML?CONTINUOUS RATE 3ML/H?EXTRA DOSE 1.4ML?(16H THERAPY)
     Route: 050
     Dates: start: 20180315

REACTIONS (4)
  - Excessive granulation tissue [Unknown]
  - Pneumonia [Unknown]
  - Device issue [Unknown]
  - Respiratory failure [Unknown]
